FAERS Safety Report 18565299 (Version 1)
Quarter: 2020Q4

REPORT INFORMATION
  Report Type: Spontaneous
  Country: FR (occurrence: FR)
  Receive Date: 20201201
  Receipt Date: 20201201
  Transmission Date: 20210114
  Serious: Yes (Death)
  Sender: FDA-Public Use
  Company Number: FR-TEVA-2020-FR-1853571

PATIENT
  Age: 88 Year
  Sex: Male
  Weight: 60 kg

DRUGS (2)
  1. CLOPIDOGREL (CHLORHYDRATE DE) [Suspect]
     Active Substance: CLOPIDOGREL HYDROCHLORIDE
     Indication: PROPHYLAXIS
     Dosage: DOSAGE NOT SPECIFIED
     Route: 048
     Dates: start: 2020, end: 20200927
  2. KARDEGIC [Interacting]
     Active Substance: ASPIRIN DL-LYSINE
     Indication: PROPHYLAXIS
     Route: 048
     Dates: start: 20200921, end: 20200927

REACTIONS (3)
  - Drug interaction [Unknown]
  - Subdural haematoma [Fatal]
  - Coma [Fatal]

NARRATIVE: CASE EVENT DATE: 20200927
